FAERS Safety Report 10462064 (Version 1)
Quarter: 2014Q3

REPORT INFORMATION
  Report Type: Spontaneous
  Country: US (occurrence: US)
  Receive Date: 20140918
  Receipt Date: 20140918
  Transmission Date: 20150326
  Serious: No
  Sender: FDA-Public Use
  Company Number: US-ALLERGAN-1405423US

PATIENT
  Age: 51 Year
  Sex: Female

DRUGS (1)
  1. VANIQA [Suspect]
     Active Substance: EFLORNITHINE HYDROCHLORIDE
     Indication: HAIR GROWTH ABNORMAL
     Dosage: UNK
     Route: 061
     Dates: start: 201311, end: 201401

REACTIONS (3)
  - Rash [Unknown]
  - Pruritus [Recovering/Resolving]
  - Erythema [Unknown]
